FAERS Safety Report 11104776 (Version 3)
Quarter: 2015Q3

REPORT INFORMATION
  Report Type: Spontaneous
  Country: GB (occurrence: GB)
  Receive Date: 20150511
  Receipt Date: 20150811
  Transmission Date: 20151125
  Serious: Yes (Disabling, Other)
  Sender: FDA-Public Use
  Company Number: GB-009507513-1505GBR002826

PATIENT
  Age: 65 Year
  Sex: Female

DRUGS (5)
  1. CARBIMAZOLE [Suspect]
     Active Substance: CARBIMAZOLE
     Indication: HYPERTHYROIDISM
     Dosage: 20 MG, UNK
     Dates: start: 201409, end: 20141108
  2. PROPRANOLOL [Concomitant]
     Active Substance: PROPRANOLOL\PROPRANOLOL HYDROCHLORIDE
     Indication: PRODUCT USED FOR UNKNOWN INDICATION
     Dosage: UNK, UNKNOWN
     Route: 065
     Dates: start: 201409
  3. NASONEX [Suspect]
     Active Substance: MOMETASONE FUROATE
     Indication: EAR DISCOMFORT
     Dosage: UNK UNK, UNKNOWN
     Route: 055
  4. NASONEX [Suspect]
     Active Substance: MOMETASONE FUROATE
     Indication: TOOTH INFECTION
     Dosage: UNK UNK, UNKNOWN
     Route: 055
     Dates: start: 20061204, end: 20150430
  5. CARBIMAZOLE [Suspect]
     Active Substance: CARBIMAZOLE
     Dosage: UNK, UNKNOWN
     Route: 065
     Dates: start: 201210, end: 201311

REACTIONS (25)
  - Cough [Unknown]
  - Physical product label issue [Unknown]
  - Cushing^s syndrome [Unknown]
  - Nausea [Unknown]
  - Blister [Unknown]
  - Thyroidectomy [Unknown]
  - Disability [Unknown]
  - Blood pressure decreased [Unknown]
  - Hyperthyroidism [Unknown]
  - Dyspnoea [Unknown]
  - Drug administration error [Unknown]
  - Hyperthyroidism [Unknown]
  - Fibula fracture [Unknown]
  - Weight increased [Unknown]
  - Blood pressure increased [Unknown]
  - Weight decreased [Unknown]
  - Mouth swelling [Unknown]
  - Muscular weakness [Unknown]
  - Asthenia [Unknown]
  - Pituitary-dependent Cushing^s syndrome [Unknown]
  - Dermatitis allergic [Unknown]
  - Dyspnoea [Unknown]
  - Abasia [Unknown]
  - Rash [Unknown]
  - Alopecia [Unknown]

NARRATIVE: CASE EVENT DATE: 200701
